FAERS Safety Report 5409923-8 (Version None)
Quarter: 2007Q3

REPORT INFORMATION
  Report Type: 
  Country: None (occurrence: None)
  Receive Date: 20070809
  Receipt Date: 20070730
  Transmission Date: 20080115
  Serious: Yes (Hospitalization, Disabling, Other)
  Sender: FDA-Public Use
  Company Number: DE-PFIZER INC-2007047137

PATIENT
  Sex: Male
  Weight: 81 kg

DRUGS (4)
  1. ATORVASTATIN CALCIUM [Suspect]
     Indication: HYPERCHOLESTEROLAEMIA
     Route: 048
  2. ENALAPRIL MALEATE [Concomitant]
  3. ANTIBIOTICS [Concomitant]
  4. METHYLPREDNISOLONE [Concomitant]
     Dates: start: 20070323, end: 20070405

REACTIONS (5)
  - ARRHYTHMIA [None]
  - CORONARY ARTERY DISEASE [None]
  - DIZZINESS [None]
  - HUNGER [None]
  - NAUSEA [None]
